FAERS Safety Report 8387994-7 (Version None)
Quarter: 2012Q2

REPORT INFORMATION
  Report Type: 
  Country: None (occurrence: None)
  Receive Date: 20120525
  Receipt Date: 20120518
  Transmission Date: 20120825
  Serious: Yes (Other)
  Sender: FDA-Public Use
  Company Number: PHHY2012BR043260

PATIENT
  Sex: Female
  Weight: 62 kg

DRUGS (1)
  1. METFORMIN HCL [Suspect]
     Indication: DIABETIC NEUROPATHY
     Dosage: 1 DF, TID (ONE IN THE MORNING, ONE AT LUNCH AND ONE AT DINNER)
     Route: 048

REACTIONS (5)
  - ANAEMIA [None]
  - HYPERTENSION [None]
  - OESOPHAGITIS [None]
  - CEREBROVASCULAR ACCIDENT [None]
  - DRUG INEFFECTIVE [None]
